FAERS Safety Report 9624692 (Version 3)
Quarter: 2014Q1

REPORT INFORMATION
  Report Type: Report from Study
  Country: FR (occurrence: FR)
  Receive Date: 20131015
  Receipt Date: 20140204
  Transmission Date: 20141002
  Serious: Yes (Other)
  Sender: FDA-Public Use
  Company Number: FR-ROCHE-1288146

PATIENT
  Age: 86 Year
  Sex: Male

DRUGS (2)
  1. RITUXIMAB [Suspect]
     Indication: CHRONIC LYMPHOCYTIC LEUKAEMIA
     Dosage: CYCLICAL
     Route: 042
     Dates: start: 20111020, end: 20120314
  2. RITUXIMAB [Suspect]
     Route: 042
     Dates: start: 20130626, end: 20130726

REACTIONS (1)
  - Nodular melanoma [Not Recovered/Not Resolved]
